FAERS Safety Report 18188429 (Version 1)
Quarter: 2020Q3

REPORT INFORMATION
  Report Type: Spontaneous
  Country: KR (occurrence: KR)
  Receive Date: 20200824
  Receipt Date: 20200824
  Transmission Date: 20201103
  Serious: Yes (Hospitalization, Other)
  Sender: FDA-Public Use
  Company Number: KR-JNJFOC-20200817018

PATIENT
  Age: 65 Year
  Sex: Male

DRUGS (1)
  1. DUROGESIC D?TRANS [Suspect]
     Active Substance: FENTANYL
     Indication: MYALGIA
     Route: 062

REACTIONS (5)
  - Cerebral atrophy [Unknown]
  - Respiratory acidosis [Recovered/Resolved]
  - Leukoencephalopathy [Unknown]
  - Overdose [Unknown]
  - Depressed level of consciousness [Recovered/Resolved]
